FAERS Safety Report 10527091 (Version 1)
Quarter: 2014Q4

REPORT INFORMATION
  Report Type: Spontaneous
  Country: AU (occurrence: AU)
  Receive Date: 20141020
  Receipt Date: 20141020
  Transmission Date: 20150528
  Serious: Yes (Other)
  Sender: FDA-Public Use
  Company Number: AU-AUROBINDO-AUR-APL-2014-10960

PATIENT
  Sex: Female
  Weight: 3.65 kg

DRUGS (4)
  1. ACETAZOLAMIDE. [Concomitant]
     Active Substance: ACETAZOLAMIDE
     Indication: BENIGN INTRACRANIAL HYPERTENSION
     Dosage: 250 MG, TWO TIMES A DAY
     Route: 065
  2. CITALOPRAM [Suspect]
     Active Substance: CITALOPRAM HYDROBROMIDE
     Indication: SCHIZOPHRENIA
     Dosage: 20 MG, DAILY
     Route: 064
  3. ARIPIPRAZOLE 10 MG [Suspect]
     Active Substance: ARIPIPRAZOLE
     Indication: SCHIZOPHRENIA
     Dosage: 10 MG, DAILY
     Route: 064
  4. ACETAZOLAMIDE. [Concomitant]
     Active Substance: ACETAZOLAMIDE
     Indication: OBESITY

REACTIONS (4)
  - Feeding disorder neonatal [Recovered/Resolved]
  - Maternal exposure during pregnancy [Unknown]
  - Maternal drugs affecting foetus [None]
  - Neonatal respiratory distress syndrome [Recovered/Resolved]
